FAERS Safety Report 10651446 (Version 2)
Quarter: 2014Q4

REPORT INFORMATION
  Report Type: Report from Study
  Country: NL (occurrence: NL)
  Receive Date: 20141215
  Receipt Date: 20141215
  Transmission Date: 20150529
  Serious: Yes (Other)
  Sender: FDA-Public Use
  Company Number: NL-JNJFOC-20141109979

PATIENT
  Sex: Male
  Weight: 76 kg

DRUGS (14)
  1. XARELTO [Suspect]
     Active Substance: RIVAROXABAN
     Indication: ATRIAL FIBRILLATION
     Route: 048
     Dates: start: 20131219, end: 20140626
  2. XARELTO [Suspect]
     Active Substance: RIVAROXABAN
     Indication: THROMBOSIS PROPHYLAXIS
     Route: 048
     Dates: start: 20130629, end: 20131219
  3. XARELTO [Suspect]
     Active Substance: RIVAROXABAN
     Indication: THROMBOSIS PROPHYLAXIS
     Route: 048
     Dates: start: 20131219, end: 20140626
  4. EZETROL [Concomitant]
     Active Substance: EZETIMIBE
     Route: 065
     Dates: start: 199911
  5. ACENOCOUMAROL [Concomitant]
     Active Substance: ACENOCOUMAROL
     Route: 065
     Dates: start: 20140628
  6. BENSERAZIDE [Concomitant]
     Active Substance: BENSERAZIDE
     Route: 065
     Dates: start: 200806
  7. XARELTO [Suspect]
     Active Substance: RIVAROXABAN
     Indication: CEREBROVASCULAR ACCIDENT PROPHYLAXIS
     Route: 048
     Dates: start: 20130629, end: 20131219
  8. BUMETANIDE. [Concomitant]
     Active Substance: BUMETANIDE
     Route: 065
     Dates: start: 199912
  9. XARELTO [Suspect]
     Active Substance: RIVAROXABAN
     Indication: ATRIAL FIBRILLATION
     Route: 048
     Dates: start: 20130629, end: 20131219
  10. XARELTO [Suspect]
     Active Substance: RIVAROXABAN
     Indication: CEREBROVASCULAR ACCIDENT PROPHYLAXIS
     Route: 048
     Dates: start: 20131219, end: 20140626
  11. LISINOPRIL. [Concomitant]
     Active Substance: LISINOPRIL
     Route: 065
     Dates: start: 199912
  12. CARVEDILOL. [Concomitant]
     Active Substance: CARVEDILOL
     Route: 065
     Dates: start: 199912
  13. PRAVASTATIN [Concomitant]
     Active Substance: PRAVASTATIN\PRAVASTATIN SODIUM
     Route: 065
     Dates: start: 199912
  14. LEVODOPA [Concomitant]
     Active Substance: LEVODOPA
     Route: 065
     Dates: start: 200806

REACTIONS (4)
  - Ear haemorrhage [Recovered/Resolved]
  - Puncture site haemorrhage [Recovered/Resolved]
  - Epistaxis [Recovered/Resolved]
  - Epistaxis [Recovered/Resolved]

NARRATIVE: CASE EVENT DATE: 20130715
